APPROVED DRUG PRODUCT: DICLOFENAC SODIUM AND MISOPROSTOL
Active Ingredient: DICLOFENAC SODIUM; MISOPROSTOL
Strength: 75MG;0.2MG
Dosage Form/Route: TABLET, DELAYED RELEASE;ORAL
Application: A205143 | Product #002 | TE Code: AB
Applicant: YUNG SHIN PHARMACEUTICAL INDUSTRIAL CO LTD
Approved: Feb 19, 2020 | RLD: No | RS: No | Type: RX